FAERS Safety Report 8406097-6 (Version None)
Quarter: 2012Q2

REPORT INFORMATION
  Report Type: 
  Country: None (occurrence: None)
  Receive Date: 20120323
  Receipt Date: 20110722
  Transmission Date: 20120825
  Serious: Yes (Hospitalization)
  Sender: FDA-Public Use
  Company Number: 163-21880-11011962

PATIENT
  Age: 86 Year
  Sex: Female

DRUGS (14)
  1. DETROL-LA(UNKNOWN) [Concomitant]
  2. LASIX [Concomitant]
  3. ZOCOR (SIMVASTATIN)(UNKNOWN) [Concomitant]
  4. JANUVIA (SITAGLIPTIN PHOSPHATE)(UNKNOWN [Concomitant]
  5. ZOFRAN [Concomitant]
  6. OMEPRAZOLE [Concomitant]
  7. SIMVASTATIN [Concomitant]
  8. REVLIMID [Suspect]
     Indication: MULTIPLE MYELOMA
     Dosage: 10 MG, 1 IN 1 D, PO
     Route: 048
     Dates: start: 20100806
  9. NOVOLIN (INSULIN HUMAN INJECTION, ISOPHANE)(UNKNOWN) [Concomitant]
  10. PROVENTIL (SALBUTAMOL)(UNKNOWN) [Concomitant]
  11. LOTRIMIN (CLOTRIMAZOLE)(UNKNOWN) [Concomitant]
  12. COENZYME (UBIDECARENONE)(UNKNOWN) [Concomitant]
  13. METOPROLOL TARTRATE [Concomitant]
  14. PRILOSEC (OMEPRAZOLE)(UNKNOWN) [Concomitant]

REACTIONS (3)
  - PNEUMONIA [None]
  - ANAEMIA [None]
  - RENAL FAILURE ACUTE [None]
